FAERS Safety Report 13562104 (Version 3)
Quarter: 2017Q3

REPORT INFORMATION
  Report Type: Spontaneous
  Country: GB (occurrence: GB)
  Receive Date: 20170519
  Receipt Date: 20170710
  Transmission Date: 20171127
  Serious: Yes (Other)
  Sender: FDA-Public Use
  Company Number: GB-AUROBINDO-AUR-APL-2017-33840

PATIENT
  Age: 67 Year
  Sex: Female

DRUGS (2)
  1. PRAMIPEXOLE TABLETS 0.18 MG [Suspect]
     Active Substance: PRAMIPEXOLE
     Indication: PARKINSON^S DISEASE
     Dosage: 1.76 MG, FOUR TIMES/DAY
     Route: 048
     Dates: start: 20170421, end: 20170502
  2. MADOPAR [Concomitant]
     Active Substance: BENSERAZIDE HYDROCHLORIDE\LEVODOPA
     Indication: PRODUCT USED FOR UNKNOWN INDICATION
     Dosage: 125MG  2 CAPSULES AT 6 A.M, 12 MIDDAY, 6 PM AND 12 MIDNIGHT, MADOPAR CR 1 CAPSULE AT MIDNIGHT, MADOP

REACTIONS (6)
  - Product substitution issue [Recovered/Resolved]
  - Suicidal ideation [Recovered/Resolved]
  - Withdrawal syndrome [Recovered/Resolved]
  - Depression [Recovered/Resolved]
  - Crying [Recovered/Resolved]
  - Drug ineffective [Recovered/Resolved]

NARRATIVE: CASE EVENT DATE: 20170422
